FAERS Safety Report 6566383-1 (Version None)
Quarter: 2010Q1

REPORT INFORMATION
  Report Type: 
  Country: None (occurrence: None)
  Receive Date: 20100202
  Receipt Date: 20100125
  Transmission Date: 20100710
  Serious: Yes (Other)
  Sender: FDA-Public Use
  Company Number: US-WYE-H13185510

PATIENT
  Sex: Male

DRUGS (1)
  1. ANBESOL [Suspect]
     Dosage: UNKNOWN
     Route: 065

REACTIONS (2)
  - COELIAC DISEASE [None]
  - COLON CANCER [None]
